FAERS Safety Report 10470161 (Version 1)
Quarter: 2014Q3

REPORT INFORMATION
  Report Type: Spontaneous
  Country: FI (occurrence: FI)
  Receive Date: 20140923
  Receipt Date: 20140923
  Transmission Date: 20150326
  Serious: Yes (Hospitalization)
  Sender: FDA-Public Use
  Company Number: FI-ELI_LILLY_AND_COMPANY-FI201409004148

PATIENT
  Age: 41 Year
  Sex: Female

DRUGS (5)
  1. PERFENAZINE [Suspect]
     Active Substance: PERPHENAZINE
     Indication: PRODUCT USED FOR UNKNOWN INDICATION
     Dosage: UNK, UNKNOWN
     Route: 065
  2. ZYPADHERA [Suspect]
     Active Substance: OLANZAPINE PAMOATE
     Dosage: 300 MG, 2/M
     Route: 030
     Dates: start: 201312, end: 201403
  3. RISPERIDONE. [Suspect]
     Active Substance: RISPERIDONE
     Indication: PRODUCT USED FOR UNKNOWN INDICATION
     Dosage: UNK, UNKNOWN
     Route: 065
  4. ZYPADHERA [Suspect]
     Active Substance: OLANZAPINE PAMOATE
     Dosage: 405 MG, 2/M
     Route: 030
     Dates: start: 201403, end: 20140910
  5. ZYPADHERA [Suspect]
     Active Substance: OLANZAPINE PAMOATE
     Indication: SCHIZOAFFECTIVE DISORDER
     Dosage: 405 MG, 2/M
     Route: 030
     Dates: start: 20131106, end: 201312

REACTIONS (10)
  - Prescribed overdose [Unknown]
  - Blister [Unknown]
  - Pruritus [Recovering/Resolving]
  - Depression [Unknown]
  - Dermatitis allergic [Recovering/Resolving]
  - Anxiety [Unknown]
  - Hyperprolactinaemia [Unknown]
  - Electrocardiogram QT prolonged [Unknown]
  - Cognitive disorder [Unknown]
  - Paranoia [Unknown]

NARRATIVE: CASE EVENT DATE: 201312
